FAERS Safety Report 21223986 (Version 1)
Quarter: 2022Q3

REPORT INFORMATION
  Report Type: Spontaneous
  Country: US (occurrence: None)
  Receive Date: 20220817
  Receipt Date: 20220817
  Transmission Date: 20221027
  Serious: Yes (Other)
  Sender: FDA-Public Use
  Company Number: None

PATIENT
  Age: 54 Year
  Sex: Male

DRUGS (1)
  1. AUSTEDO [Suspect]
     Active Substance: DEUTETRABENAZINE
     Dosage: FREQUENCY : TWICE A DAY;?
     Route: 048
     Dates: start: 20220713, end: 20220717

REACTIONS (4)
  - Somnolence [None]
  - Fatigue [None]
  - Loss of personal independence in daily activities [None]
  - Somnolence [None]

NARRATIVE: CASE EVENT DATE: 20220714
